FAERS Safety Report 9170841 (Version 2)
Quarter: 2013Q1

REPORT INFORMATION
  Report Type: Spontaneous
  Country: GB (occurrence: None)
  Receive Date: 20130311
  Receipt Date: 20130322
  Transmission Date: 20140127
  Serious: Yes (Life-Threatening, Hospitalization, Other)
  Sender: FDA-Public Use
  Company Number: 2013-1016

PATIENT
  Age: 42 Year
  Sex: Female
  Weight: 100 kg

DRUGS (11)
  1. SOMATULINE AUTOGEL [Suspect]
     Indication: DIARRHOEA
     Route: 058
     Dates: start: 20130220, end: 20130220
  2. SOMATULINE AUTOGEL [Suspect]
     Indication: OFF LABEL USE
     Route: 058
     Dates: start: 20130220, end: 20130220
  3. AMITRIPTYLINE(AMITRIPTYLINE) [Concomitant]
  4. CARBAMAZEPINE(CARBAMAZEPINE) [Concomitant]
  5. CODEINE (CODEINE) [Concomitant]
  6. DESOGESTREL (DESOGESTREL) [Concomitant]
  7. DEXAMETHASONE (DEXAMETHASONE) [Concomitant]
  8. FUROSEMIDE (FUROSEMIDE) [Concomitant]
  9. METRONIDAZOLE (METRONIDAZOLE) [Concomitant]
  10. RANITIDINE (RANITIDINE) [Concomitant]
  11. SODIUM VALPROATE (VALPROATE SODIUM) [Concomitant]

REACTIONS (5)
  - Anaphylactic reaction [None]
  - Obstructive airways disorder [None]
  - Pharyngeal oedema [None]
  - Swollen tongue [None]
  - Off label use [None]
